FAERS Safety Report 14293133 (Version 1)
Quarter: 2017Q4

REPORT INFORMATION
  Report Type: Report from Study
  Country: None (occurrence: US)
  Receive Date: 20171215
  Receipt Date: 20171215
  Transmission Date: 20180321
  Serious: Yes (Death)
  Sender: FDA-Public Use
  Company Number: US-VIFOR (INTERNATIONAL) INC.-VIT-2017-12754

PATIENT
  Sex: Female

DRUGS (26)
  1. ZOLPIDEM [Concomitant]
     Active Substance: ZOLPIDEM\ZOLPIDEM TARTRATE
     Dates: start: 20170808, end: 20171007
  2. ROPINIROLE. [Concomitant]
     Active Substance: ROPINIROLE
     Dates: start: 20170802
  3. PANTOPRAZOLE [Concomitant]
     Active Substance: PANTOPRAZOLE
     Dates: start: 20170808
  4. SEVELAMER [Concomitant]
     Active Substance: SEVELAMER
     Dates: start: 20170808, end: 20171007
  5. RENVELA [Concomitant]
     Active Substance: SEVELAMER CARBONATE
     Dates: start: 20170809, end: 20171008
  6. RENVELA [Concomitant]
     Active Substance: SEVELAMER CARBONATE
     Dates: start: 20170627
  7. CARVEDILOL. [Concomitant]
     Active Substance: CARVEDILOL
     Dates: start: 20170801
  8. PRAVASTATIN. [Concomitant]
     Active Substance: PRAVASTATIN
     Dates: start: 20170518, end: 20171114
  9. RESTASIS [Concomitant]
     Active Substance: CYCLOSPORINE
     Dates: start: 20170801
  10. LANTUS [Concomitant]
     Active Substance: INSULIN GLARGINE
     Dates: start: 20170417, end: 20171014
  11. LANTUS [Concomitant]
     Active Substance: INSULIN GLARGINE
     Dates: start: 20170724
  12. FLUOXETINE [Concomitant]
     Active Substance: FLUOXETINE HYDROCHLORIDE
     Dates: start: 20171011
  13. MEMANTINE HYDROCHLORIDE. [Concomitant]
     Active Substance: MEMANTINE HYDROCHLORIDE
     Dates: start: 20170218, end: 20171114
  14. CLOPIDOGREL [Concomitant]
     Active Substance: CLOPIDOGREL BISULFATE
     Dates: start: 20170801
  15. NOVOLOG [Concomitant]
     Active Substance: INSULIN ASPART
     Dates: start: 20170424, end: 20171021
  16. PANTOPRAZOLE [Concomitant]
     Active Substance: PANTOPRAZOLE
     Dates: start: 20170801
  17. VELTASSA [Suspect]
     Active Substance: PATIROMER
     Indication: HYPERKALAEMIA
     Route: 048
     Dates: start: 20170622
  18. FLUOXETINE [Concomitant]
     Active Substance: FLUOXETINE HYDROCHLORIDE
     Dates: start: 20170506
  19. CARVEDILOL. [Concomitant]
     Active Substance: CARVEDILOL
     Dates: start: 20170802
  20. ZOLPIDEM [Concomitant]
     Active Substance: ZOLPIDEM\ZOLPIDEM TARTRATE
     Dates: start: 20170905, end: 20171104
  21. LYRICA [Concomitant]
     Active Substance: PREGABALIN
     Dates: start: 20170614, end: 20171012
  22. FLUOXETINE [Concomitant]
     Active Substance: FLUOXETINE HYDROCHLORIDE
     Dates: start: 20170710, end: 20171107
  23. PRAVASTATIN. [Concomitant]
     Active Substance: PRAVASTATIN
     Dates: start: 20170512, end: 20171108
  24. CARVEDILOL. [Concomitant]
     Active Substance: CARVEDILOL
     Dates: start: 20170618, end: 20171114
  25. ROPINIROLE. [Concomitant]
     Active Substance: ROPINIROLE
     Dates: start: 20170801
  26. PANTOPRAZOLE [Concomitant]
     Active Substance: PANTOPRAZOLE
     Dates: start: 20170906

REACTIONS (1)
  - Death [Fatal]

NARRATIVE: CASE EVENT DATE: 2017
